FAERS Safety Report 12699357 (Version 5)
Quarter: 2016Q4

REPORT INFORMATION
  Report Type: Spontaneous
  Country: JP (occurrence: JP)
  Receive Date: 20160830
  Receipt Date: 20161014
  Transmission Date: 20170207
  Serious: Yes (Other)
  Sender: FDA-Public Use
  Company Number: JP-PFIZER INC-2016405793

PATIENT
  Age: 49 Year
  Sex: Male

DRUGS (6)
  1. AMLODIPINE [Interacting]
     Active Substance: AMLODIPINE BESYLATE
     Indication: HYPERCHOLESTEROLAEMIA
     Dosage: 2.5 MG, DAILY
     Route: 048
  2. ALLOPURINOL. [Interacting]
     Active Substance: ALLOPURINOL
     Indication: HYPERCHOLESTEROLAEMIA
     Dosage: 300 MG, DAILY
     Route: 048
  3. MECOBALAMIN [Interacting]
     Active Substance: METHYLCOBALAMIN
     Indication: HYPERCHOLESTEROLAEMIA
     Dosage: 1.5 G, DAILY
     Route: 048
  4. SUCRALFATE. [Interacting]
     Active Substance: SUCRALFATE
     Indication: HYPERCHOLESTEROLAEMIA
     Dosage: 3 G, DAILY
     Route: 048
  5. FLUCONAZOLE. [Suspect]
     Active Substance: FLUCONAZOLE
     Dosage: 100 MG, UNK
     Route: 048
  6. SIMVASTATIN. [Interacting]
     Active Substance: SIMVASTATIN
     Indication: HYPERCHOLESTEROLAEMIA
     Dosage: 10 MG, DAILY
     Route: 048
     Dates: start: 200102

REACTIONS (7)
  - Rhabdomyolysis [Unknown]
  - Chromaturia [Unknown]
  - Pyrexia [Unknown]
  - Myalgia [Unknown]
  - Muscular weakness [Recovered/Resolved]
  - Malaise [Unknown]
  - Drug interaction [Unknown]
